FAERS Safety Report 6574098-9 (Version None)
Quarter: 2010Q1

REPORT INFORMATION
  Report Type: 
  Country: None (occurrence: None)
  Receive Date: 20100208
  Receipt Date: 20100201
  Transmission Date: 20100710
  Serious: Yes (Other)
  Sender: FDA-Public Use
  Company Number: US-BAYER-200943517NA

PATIENT
  Age: 59 Year
  Sex: Female

DRUGS (1)
  1. AVELOX [Suspect]
     Indication: SINUSITIS
     Route: 048
     Dates: start: 20091216, end: 20091217

REACTIONS (4)
  - ADVERSE EVENT [None]
  - DYSPNOEA [None]
  - PALPITATIONS [None]
  - PRESYNCOPE [None]
